FAERS Safety Report 24437725 (Version 1)
Quarter: 2024Q4

REPORT INFORMATION
  Report Type: Spontaneous
  Country: US (occurrence: US)
  Receive Date: 20241015
  Receipt Date: 20241015
  Transmission Date: 20250114
  Serious: Yes (Hospitalization)
  Sender: PHARMING GROUP
  Company Number: US-PHARMING-PHAUS2024000888

PATIENT

DRUGS (2)
  1. RUCONEST [Suspect]
     Active Substance: CONESTAT ALFA
     Indication: Hereditary angioedema
     Dosage: 3000 IU, AS NEEDED
     Route: 042
     Dates: start: 202304
  2. RUCONEST [Suspect]
     Active Substance: CONESTAT ALFA
     Dosage: 3000 IU, EVERY THREE DAYS
     Route: 042

REACTIONS (3)
  - Cardiac monitoring [Unknown]
  - Weight decreased [Unknown]
  - Intentional product use issue [Unknown]
